FAERS Safety Report 4327875-9 (Version None)
Quarter: 2004Q1

REPORT INFORMATION
  Report Type: 
  Country: None (occurrence: None)
  Receive Date: 20040330
  Receipt Date: 20040322
  Transmission Date: 20041129
  Serious: Yes (Other)
  Sender: FDA-Public Use
  Company Number: 2004019300

PATIENT
  Age: 75 Year
  Sex: Male
  Weight: 117.9352 kg

DRUGS (12)
  1. BENGAY PAIN RELIEVING PATCH (MENTHOL) [Suspect]
     Indication: BACK PAIN
     Dosage: ONE PATCH ONCE, TOPICAL
     Route: 061
     Dates: start: 20040320, end: 20040320
  2. SIMVASTATIN [Concomitant]
  3. INSULIN [Concomitant]
  4. REPAGLINIDE (REPAGLINIDE) [Concomitant]
  5. CAPTOPRIL [Concomitant]
  6. FUROSEMIDE [Concomitant]
  7. TOLTERODINE L-TARTRATE (TOLTERODINE L-TARTRATE) [Concomitant]
  8. AMLODIPINE BESYLATE [Concomitant]
  9. SPIRONOLACTONE [Concomitant]
  10. OMEPRAZOLE [Concomitant]
  11. FAMOTIDINE [Concomitant]
  12. DIPHENHYDRAMINE HCL [Concomitant]

REACTIONS (2)
  - THROAT TIGHTNESS [None]
  - URTICARIA GENERALISED [None]
